FAERS Safety Report 8432139-8 (Version None)
Quarter: 2012Q2

REPORT INFORMATION
  Report Type: 
  Country: None (occurrence: None)
  Receive Date: 20120613
  Receipt Date: 20120607
  Transmission Date: 20120825
  Serious: Yes (Death, Hospitalization)
  Sender: FDA-Public Use
  Company Number: US-CELGENEUS-163-C5013-11053380

PATIENT
  Sex: Male
  Weight: 49.9 kg

DRUGS (69)
  1. PREDNISONE TAB [Suspect]
     Indication: PROSTATE CANCER
     Dosage: 5-10MG
     Route: 048
     Dates: start: 20110426
  2. DOCETAXEL [Suspect]
     Dosage: 115 MILLIGRAM
     Route: 065
     Dates: start: 20110517, end: 20110517
  3. METOPROLOL TARTRATE [Concomitant]
     Dosage: 5 MILLIGRAM
     Route: 041
     Dates: start: 20110607, end: 20110608
  4. SIMETHICONE [Concomitant]
     Dosage: 80 MILLIGRAM
     Route: 048
     Dates: start: 20110604, end: 20110604
  5. LENALIDOMIDE [Suspect]
     Dosage: 20 MILLIGRAM
     Route: 048
     Dates: start: 20110517, end: 20110523
  6. DILTIAZEM HCL [Concomitant]
     Dosage: 10 MILLIGRAM
     Route: 041
     Dates: start: 20110525, end: 20110525
  7. DILTIAZEM HCL [Concomitant]
     Dosage: 30MG-45MG-60MG
     Route: 048
     Dates: start: 20110529, end: 20110609
  8. DILTIAZEM HCL [Concomitant]
     Dosage: 10 MILLIGRAM
     Route: 041
     Dates: start: 20110607, end: 20110607
  9. FUROSEMIDE [Concomitant]
     Dosage: 20MG-40MG
     Route: 041
     Dates: start: 20110529, end: 20110529
  10. FUROSEMIDE [Concomitant]
     Dosage: 20 MILLIGRAM
     Route: 041
     Dates: start: 20110607, end: 20110607
  11. METHADONE HCL [Concomitant]
     Dosage: 10 MILLIGRAM
     Route: 048
     Dates: start: 20110525, end: 20110530
  12. PIPERACILLIN/TAZOBACTAM [Concomitant]
     Dosage: 4.5 GRAM
     Route: 041
     Dates: start: 20110525, end: 20110611
  13. NEXIUM [Concomitant]
     Dosage: 40 MILLIGRAM
     Dates: start: 20110607, end: 20110610
  14. SODIUM POTASSIUM PHOSPHATE [Concomitant]
     Dosage: 2 PACKETS
     Route: 048
     Dates: start: 20110527, end: 20110527
  15. PREDNISONE TAB [Suspect]
     Dosage: 5-10MG
     Route: 048
     Dates: start: 20110517, end: 20110606
  16. DOCETAXEL [Suspect]
     Indication: PROSTATE CANCER
     Dosage: 115 MILLIGRAM
     Route: 065
     Dates: start: 20110426
  17. AMBIEN CR [Concomitant]
     Dosage: 12.5 MILLIGRAM
     Route: 048
  18. DICLOXACILLIN [Concomitant]
     Dosage: 500 MILLIGRAM
     Route: 048
     Dates: start: 20110426
  19. ONDANSETRON [Concomitant]
     Indication: VOMITING
     Dosage: 4 MILLIGRAM
     Route: 041
     Dates: start: 20110607, end: 20110611
  20. MORPHINE SULFATE [Concomitant]
     Dosage: 1 MILLIGRAM
     Route: 041
  21. XENADERM [Concomitant]
     Dosage: 1 APPLICATION
     Route: 061
     Dates: start: 20110609, end: 20110611
  22. GABAPENTIN [Concomitant]
     Dosage: 300 MILLIGRAM
     Route: 048
     Dates: start: 20110525, end: 20110530
  23. BISACODYL [Concomitant]
     Dosage: 10 MILLIGRAM
     Route: 054
     Dates: start: 20110605, end: 20110605
  24. SODIUM POTASSIUM PHOSPHATE [Concomitant]
     Dosage: 1 TABLET
     Route: 048
     Dates: start: 20110528, end: 20110528
  25. SENNA-MINT WAF [Concomitant]
     Dosage: 2 TABLET
     Route: 048
     Dates: start: 20110605, end: 20110611
  26. SYNTHROID [Concomitant]
     Dosage: 50 MICROGRAM
     Route: 048
  27. MORPHINE SULFATE [Concomitant]
     Indication: PAIN
     Dosage: .5 MILLIGRAM
     Route: 041
     Dates: start: 20110602, end: 20110604
  28. LEVOTHYROXINE SODIUM [Concomitant]
     Dosage: 25 MICROGRAM
     Route: 041
     Dates: start: 20110608, end: 20110608
  29. LEVOTHYROXINE SODIUM [Concomitant]
     Dosage: 50 MICROGRAM
     Route: 048
     Dates: start: 20110609, end: 20110611
  30. SODIUM PHOSPHATE [Concomitant]
     Dosage: 15 MILLIMOLE
     Route: 041
     Dates: start: 20110602, end: 20110602
  31. LENALIDOMIDE [Suspect]
     Indication: PROSTATE CANCER
     Dosage: 25 MILLIGRAM
     Route: 048
     Dates: start: 20110426
  32. ASPIRIN [Concomitant]
     Indication: THROMBOSIS PROPHYLAXIS
     Dosage: 81 MILLIGRAM
     Route: 048
     Dates: start: 20110426
  33. DILTIAZEM HCL [Concomitant]
     Indication: BLOOD PRESSURE
     Dosage: 30 MILLIGRAM
     Route: 048
     Dates: start: 20110525, end: 20110601
  34. DILTIAZEM HCL [Concomitant]
     Dosage: 10 MILLIGRAM
     Route: 041
     Dates: start: 20110530, end: 20110530
  35. VALIUM [Concomitant]
     Dosage: 5 MILLIGRAM
     Route: 048
  36. DOCUSATE SODIUM [Concomitant]
     Dosage: 100 MILLIGRAM
     Route: 048
     Dates: start: 20110527, end: 20110529
  37. FAMOTIDINE [Concomitant]
     Dosage: 10 MILLIGRAM
     Route: 040
     Dates: start: 20110607, end: 20110608
  38. MAGNESIUM SULFATE [Concomitant]
     Dosage: 4 GRAM
     Dates: start: 20110529, end: 20110529
  39. MORPHINE SULFATE [Concomitant]
     Indication: PAIN
     Dosage: 5 MILLIGRAM
     Route: 048
     Dates: start: 20110605, end: 20110608
  40. MINERAL OIL [Concomitant]
     Route: 048
  41. NEURONTIN [Concomitant]
     Dosage: 300 MILLIGRAM
     Route: 048
  42. PROCHLORPERAZINE [Concomitant]
     Dosage: 10 MILLIGRAM
     Route: 048
     Dates: start: 20110426
  43. METOPROLOL TARTRATE [Concomitant]
     Dosage: 37.5 MILLIGRAM
     Route: 048
     Dates: start: 20110610, end: 20110611
  44. DOCUSATE SODIUM [Concomitant]
     Dosage: 100 MILLIGRAM
     Route: 048
     Dates: start: 20110605, end: 20110611
  45. LEVOTHYROXINE SODIUM [Concomitant]
     Dosage: 25 MICROGRAM
     Route: 041
     Dates: start: 20110525, end: 20110526
  46. POTASSIUM CHLORIDE [Concomitant]
     Dosage: 10 MILLIEQUIVALENTS
     Route: 041
     Dates: start: 20110526, end: 20110527
  47. MAGNESIUM SULFATE [Concomitant]
     Dosage: 2 GRAM
     Dates: start: 20110526, end: 20110526
  48. MAGNESIUM SULFATE [Concomitant]
     Dosage: 4 GRAM
     Dates: start: 20110603, end: 20110603
  49. MAGNESIUM SULFATE [Concomitant]
     Dosage: 2 GRAM
     Dates: start: 20110606, end: 20110606
  50. DILTIAZEM HCL [Concomitant]
     Dosage: 120 MILLIGRAM
     Route: 048
     Dates: start: 20110527, end: 20110529
  51. DILTIAZEM HCL [Concomitant]
     Dosage: 15 MILLIGRAM
     Route: 041
     Dates: start: 20110601, end: 20110601
  52. VANCOMYCIN [Concomitant]
     Dosage: 750 MILLIGRAM
     Route: 041
     Dates: start: 20110601, end: 20110610
  53. METOPROLOL TARTRATE [Concomitant]
     Dosage: 25 MILLIGRAM
     Route: 048
     Dates: start: 20110609, end: 20110610
  54. METOPROLOL TARTRATE [Concomitant]
     Dosage: 5 MILLIGRAM
     Route: 041
     Dates: start: 20110610, end: 20110610
  55. LEVOTHYROXINE SODIUM [Concomitant]
     Dosage: 50 MICROGRAM
     Route: 048
     Dates: start: 20110527, end: 20110607
  56. POTASSIUM CHLORIDE [Concomitant]
     Dosage: 20 MILLIEQUIVALENTS
     Route: 041
     Dates: start: 20110526, end: 20110526
  57. DEXAMETHASONE [Concomitant]
     Dosage: 8 MILLIGRAM
     Route: 048
     Dates: start: 20110426
  58. DILAUDID [Concomitant]
     Route: 065
  59. FUROSEMIDE [Concomitant]
     Dosage: 20 MILLIGRAM
     Route: 048
     Dates: start: 20110510
  60. ONDANSETRON [Concomitant]
     Indication: NAUSEA
     Dosage: 8 MILLIGRAM
     Route: 048
     Dates: start: 20110426, end: 20110607
  61. VITAMIN D [Concomitant]
     Dosage: 50000 UNITS
     Route: 048
  62. MORPHINE SULFATE [Concomitant]
     Dosage: 1 MILLIGRAM
     Route: 041
     Dates: start: 20110604, end: 20110611
  63. MORPHINE SULFATE [Concomitant]
     Dosage: 7.5 MILLIGRAM
     Route: 048
     Dates: start: 20110608, end: 20110611
  64. NEXIUM [Concomitant]
     Dosage: 40 MILLIGRAM
     Route: 048
     Dates: start: 20110610, end: 20110611
  65. SANTYL [Concomitant]
     Dosage: 1 APPLICATION
     Route: 061
     Dates: start: 20110609, end: 20110611
  66. ACETAMINOPHEN [Concomitant]
     Indication: PAIN
     Dosage: 650 MILLIGRAM
     Route: 048
     Dates: start: 20110601, end: 20110611
  67. POLYETHYLENE GLYCOL [Concomitant]
     Indication: CONSTIPATION
     Dosage: 1 PACKET
     Route: 048
     Dates: start: 20110527, end: 20110610
  68. METHYLPREDNISOLONE SODIUM SUCCINATE [Concomitant]
     Dosage: 4 MILLIGRAM
     Dates: start: 20110607, end: 20110608
  69. SODIUM POTASSIUM PHOSPHATE [Concomitant]
     Dosage: 1 TABLET
     Route: 048
     Dates: start: 20110603, end: 20110603

REACTIONS (2)
  - PROSTATE CANCER [None]
  - DEHYDRATION [None]
